FAERS Safety Report 5404668-2 (Version None)
Quarter: 2007Q3

REPORT INFORMATION
  Report Type: 
  Country: None (occurrence: None)
  Receive Date: 20070731
  Receipt Date: 20070716
  Transmission Date: 20080115
  Serious: Yes (Other)
  Sender: FDA-Public Use
  Company Number: GB-1163611

PATIENT
  Age: 2 Month
  Sex: Female

DRUGS (1)
  1. APRACLONIDINE [Suspect]
     Indication: HORNER'S SYNDROME
     Dosage: EYE DROPS SOLUTION 1 GTT OU OPHTHALMIC
     Route: 047

REACTIONS (5)
  - HEART RATE INCREASED [None]
  - PUPILS UNEQUAL [None]
  - RESPIRATORY RATE INCREASED [None]
  - SOMNOLENCE [None]
  - UNRESPONSIVE TO STIMULI [None]
